FAERS Safety Report 15311116 (Version 2)
Quarter: 2018Q4

REPORT INFORMATION
  Report Type: Spontaneous
  Country: US (occurrence: US)
  Receive Date: 20180823
  Receipt Date: 20181122
  Transmission Date: 20190204
  Serious: No
  Sender: FDA-Public Use
  Company Number: US-TEVA-2018-US-945225

PATIENT
  Sex: Female

DRUGS (1)
  1. CLONAZEPAM. [Suspect]
     Active Substance: CLONAZEPAM
     Indication: POSTURAL ORTHOSTATIC TACHYCARDIA SYNDROME
     Route: 065
     Dates: start: 20180813

REACTIONS (6)
  - Drug effect variable [Unknown]
  - Feeling hot [Unknown]
  - Pollakiuria [Unknown]
  - Drug effect faster than expected [Unknown]
  - Insomnia [Unknown]
  - Palpitations [Unknown]

NARRATIVE: CASE EVENT DATE: 20180813
